FAERS Safety Report 12829110 (Version 2)
Quarter: 2017Q4

REPORT INFORMATION
  Report Type: Spontaneous
  Country: US (occurrence: US)
  Receive Date: 20161007
  Receipt Date: 20171018
  Transmission Date: 20180320
  Serious: Yes (Disabling)
  Sender: FDA-Public Use
  Company Number: US-SA-2016SA047062

PATIENT
  Age: 61 Year
  Sex: Female

DRUGS (6)
  1. AUBAGIO [Suspect]
     Active Substance: TERIFLUNOMIDE
     Indication: MULTIPLE SCLEROSIS
     Route: 048
     Dates: start: 201401
  2. SERTRALINE [Concomitant]
     Active Substance: SERTRALINE HYDROCHLORIDE
  3. EVISTA [Concomitant]
     Active Substance: RALOXIFENE HYDROCHLORIDE
  4. OXYBUTYNIN. [Concomitant]
     Active Substance: OXYBUTYNIN CHLORIDE
  5. AUBAGIO [Suspect]
     Active Substance: TERIFLUNOMIDE
     Indication: MULTIPLE SCLEROSIS
     Route: 048
     Dates: start: 20151231
  6. AUBAGIO [Suspect]
     Active Substance: TERIFLUNOMIDE
     Indication: MULTIPLE SCLEROSIS
     Route: 048
     Dates: start: 201401

REACTIONS (2)
  - Balance disorder [Not Recovered/Not Resolved]
  - Frequent bowel movements [Unknown]

NARRATIVE: CASE EVENT DATE: 201602
